FAERS Safety Report 7765219-0 (Version None)
Quarter: 2011Q3

REPORT INFORMATION
  Report Type: 
  Country: None (occurrence: None)
  Receive Date: 20110921
  Receipt Date: 20110913
  Transmission Date: 20111222
  Serious: Yes (Death, Life-Threatening, Hospitalization, Disabling)
  Sender: FDA-Public Use
  Company Number: US-GLAXOSMITHKLINE-A0943077A

PATIENT
  Age: 60 Year
  Sex: Male

DRUGS (5)
  1. PROZAC [Concomitant]
     Indication: DEPRESSION
     Dosage: 20MG PER DAY
     Route: 048
  2. MIACALCIN [Concomitant]
     Indication: HYPERCALCAEMIA
     Dosage: 1SPR PER DAY
     Route: 045
  3. LISINOPRIL [Concomitant]
     Indication: HYPERTENSION
     Dosage: 40MG PER DAY
     Route: 048
  4. TAGAMET [Concomitant]
     Indication: GASTROOESOPHAGEAL REFLUX DISEASE
     Dosage: 400MG TWICE PER DAY
     Route: 048
  5. VOTRIENT [Suspect]
     Indication: RENAL CANCER
     Dosage: 800MG IN THE MORNING
     Route: 048
     Dates: start: 20110223, end: 20110820

REACTIONS (5)
  - DYSPHAGIA [None]
  - RENAL CANCER [None]
  - METASTASES TO CENTRAL NERVOUS SYSTEM [None]
  - PNEUMONIA ASPIRATION [None]
  - NEOPLASM MALIGNANT [None]
